FAERS Safety Report 4512586-7 (Version None)
Quarter: 2004Q4

REPORT INFORMATION
  Report Type: 
  Country: None (occurrence: None)
  Receive Date: 20041129
  Receipt Date: 20041004
  Transmission Date: 20050328
  Serious: Yes (Life-Threatening, Hospitalization, Disabling)
  Sender: FDA-Public Use
  Company Number: DE-MERCK-0410DEU00058

PATIENT
  Age: 41 Year
  Sex: Male
  Weight: 125 kg

DRUGS (10)
  1. VIOXX [Suspect]
     Indication: SPINAL DISORDER
     Route: 048
     Dates: start: 19990101, end: 20041002
  2. VIOXX [Suspect]
     Indication: INTERVERTEBRAL DISC OPERATION
     Route: 048
     Dates: start: 19990101, end: 20041002
  3. MORPHINE [Concomitant]
     Route: 048
     Dates: start: 19990101
  4. MOLSIDOMINE [Concomitant]
     Indication: CORONARY ARTERY DISEASE
     Route: 048
     Dates: start: 20010101
  5. ASPIRIN [Concomitant]
     Indication: CORONARY ARTERY DISEASE
     Route: 048
     Dates: start: 20000101
  6. RAMIPRIL [Concomitant]
     Indication: HYPERTENSION
     Route: 048
     Dates: start: 20010101
  7. ALLOPURINOL [Concomitant]
     Indication: HYPERURICAEMIA
     Route: 048
     Dates: start: 19950101
  8. METOPROLOL [Concomitant]
     Route: 048
     Dates: start: 20010101
  9. BISACODYL [Concomitant]
     Route: 048
     Dates: start: 20000101
  10. OMEPRAZOLE [Concomitant]
     Route: 065
     Dates: start: 20010101

REACTIONS (9)
  - ACUTE MYOCARDIAL INFARCTION [None]
  - ANGINA PECTORIS [None]
  - CARDIOMEGALY [None]
  - CORONARY ARTERY ATHEROSCLEROSIS [None]
  - CORONARY ARTERY OCCLUSION [None]
  - CORONARY ARTERY STENOSIS [None]
  - MYOCARDIAL INFARCTION [None]
  - OVERDOSE [None]
  - VENTRICULAR DYSFUNCTION [None]
